FAERS Safety Report 9059316 (Version 3)
Quarter: 2013Q2

REPORT INFORMATION
  Report Type: Spontaneous
  Country: US (occurrence: US)
  Receive Date: 20130211
  Receipt Date: 20130515
  Transmission Date: 20140414
  Serious: No
  Sender: FDA-Public Use
  Company Number: US-ASTRAZENECA-2011SE57907

PATIENT
  Age: 68 Year
  Sex: Female

DRUGS (4)
  1. NEXIUM [Suspect]
     Indication: GASTROOESOPHAGEAL REFLUX DISEASE
     Route: 048
  2. PRILOSEC OTC [Suspect]
     Route: 048
  3. OXYGEN [Concomitant]
  4. OVER THE COUNTER MEDICATIONS [Concomitant]

REACTIONS (9)
  - Gastrooesophageal reflux disease [Unknown]
  - Cough [Unknown]
  - Respiratory distress [Unknown]
  - Animal bite [Unknown]
  - Haemorrhage [Unknown]
  - Haemoptysis [Unknown]
  - Malaise [Unknown]
  - Drug ineffective [Unknown]
  - Drug dose omission [Unknown]
